APPROVED DRUG PRODUCT: DEXMETHYLPHENIDATE HYDROCHLORIDE
Active Ingredient: DEXMETHYLPHENIDATE HYDROCHLORIDE
Strength: 40MG
Dosage Form/Route: CAPSULE, EXTENDED RELEASE;ORAL
Application: A204266 | Product #007
Applicant: AUROLIFE PHARMA LLC
Approved: Aug 25, 2015 | RLD: No | RS: No | Type: DISCN